FAERS Safety Report 5789772-1 (Version None)
Quarter: 2008Q2

REPORT INFORMATION
  Report Type: 
  Country: None (occurrence: None)
  Receive Date: 20080626
  Receipt Date: 20080213
  Transmission Date: 20081010
  Serious: No
  Sender: FDA-Public Use
  Company Number: A0709274A

PATIENT
  Age: 58 Year
  Sex: Female

DRUGS (3)
  1. ALLI [Suspect]
     Dates: start: 20080129
  2. BLOOD PRESSURE MEDICATION [Concomitant]
  3. ASCORBIC ACID [Concomitant]

REACTIONS (2)
  - BLOOD PRESSURE INCREASED [None]
  - HEADACHE [None]
